FAERS Safety Report 9989187 (Version 1)
Quarter: 2013Q4

REPORT INFORMATION
  Report Type: Spontaneous
  Country: US (occurrence: None)
  Receive Date: 20131023
  Receipt Date: 20131023
  Transmission Date: 20140711
  Serious: Yes (Other)
  Sender: FDA-Public Use
  Company Number: 001615779A

PATIENT
  Age: 14 Year
  Sex: Male

DRUGS (5)
  1. PROACTIV RENEWING CLEANSER [Suspect]
     Indication: ACNE
     Dosage: DERMAL
     Dates: start: 20130905, end: 20130913
  2. PROACTIV REPAIRING TREATMENT [Suspect]
     Indication: ACNE
     Dosage: DERMAL
     Dates: start: 20130905, end: 20130913
  3. PROACTIV DEEP CLEANSING WASH [Suspect]
     Indication: ACNE
     Dosage: DERMAL
     Dates: start: 20130905, end: 20130913
  4. PROACTIV ADVANCED BLEMISH TREATMENT [Suspect]
     Indication: ACNE
     Dosage: DERMAL
     Dates: start: 20130905, end: 20130913
  5. PROACTIV REFINING MASK [Suspect]
     Indication: ACNE
     Dosage: DERMAL
     Dates: start: 20130905, end: 20130913

REACTIONS (2)
  - Rash [None]
  - Lip swelling [None]
